FAERS Safety Report 12380211 (Version 3)
Quarter: 2016Q2

REPORT INFORMATION
  Report Type: Report from Study
  Country: US (occurrence: US)
  Receive Date: 20160518
  Receipt Date: 20160608
  Transmission Date: 20160815
  Serious: Yes (Hospitalization)
  Sender: FDA-Public Use
  Company Number: US-009507513-1605USA006874

PATIENT
  Age: 74 Year
  Sex: Female
  Weight: 75.3 kg

DRUGS (1)
  1. INTERFERON ALFA-2B [Suspect]
     Active Substance: INTERFERON ALFA-2B
     Indication: MALIGNANT MELANOMA
     Dosage: 37 MILLION UNITS, QD, MONDAY-FRIDAY FOR 4 WEEKS
     Route: 042
     Dates: start: 20160502, end: 20160506

REACTIONS (1)
  - Hypoxia [Recovering/Resolving]

NARRATIVE: CASE EVENT DATE: 20160509
